FAERS Safety Report 8091273-5 (Version None)
Quarter: 2012Q1

REPORT INFORMATION
  Report Type: 
  Country: None (occurrence: None)
  Receive Date: 20120129
  Receipt Date: 20111024
  Transmission Date: 20120608
  Serious: No
  Sender: FDA-Public Use
  Company Number: US-ABBOTT-11P-163-0868306-00

PATIENT
  Weight: 59.02 kg

DRUGS (8)
  1. GABAPENTIN [Concomitant]
     Indication: PAIN
  2. ANTIBIOTIC CREAM [Concomitant]
     Indication: SKIN LESION
  3. HUMIRA [Suspect]
     Route: 058
     Dates: start: 20110923, end: 20110923
  4. HUMIRA [Suspect]
     Indication: CROHN'S DISEASE
     Route: 058
  5. OXYCODONE HCL AND ACETAMINOPHEN [Concomitant]
     Indication: PAIN
  6. MORPHINE [Concomitant]
     Indication: PAIN
  7. HUMIRA [Suspect]
     Route: 058
     Dates: start: 20111007
  8. GABAPENTIN [Concomitant]
     Indication: INSOMNIA

REACTIONS (2)
  - NAUSEA [None]
  - PYREXIA [None]
